FAERS Safety Report 9475038 (Version 2)
Quarter: 2013Q3

REPORT INFORMATION
  Report Type: Report from Study
  Country: BE (occurrence: BE)
  Receive Date: 20130824
  Receipt Date: 20130824
  Transmission Date: 20140515
  Serious: Yes (Other)
  Sender: FDA-Public Use
  Company Number: BE-US-EMD SERONO, INC.-7218559

PATIENT
  Sex: Female

DRUGS (2)
  1. REBIF [Suspect]
     Indication: PRODUCT USED FOR UNKNOWN INDICATION
     Dates: end: 2013
  2. REBIF [Suspect]
     Dates: start: 2013

REACTIONS (3)
  - Abortion induced [Recovered/Resolved]
  - Depression [Unknown]
  - Maternal exposure during pregnancy [Recovered/Resolved]
